FAERS Safety Report 12699749 (Version 4)
Quarter: 2018Q4

REPORT INFORMATION
  Report Type: Report from Study
  Country: DE (occurrence: DE)
  Receive Date: 20160830
  Receipt Date: 20181017
  Transmission Date: 20190204
  Serious: Yes (Hospitalization)
  Sender: FDA-Public Use
  Company Number: DE-INCYTE CORPORATION-2016IN003290

PATIENT

DRUGS (10)
  1. INCB018424 [Suspect]
     Active Substance: RUXOLITINIB
     Dosage: 2 DF, QD (20 MG)
     Route: 048
     Dates: start: 20160210, end: 20160308
  2. FERRO SANOL [Concomitant]
     Active Substance: FERROUS GLYCINE SULFATE
     Indication: ANAEMIA
     Dosage: 100 MG, QD
     Route: 065
     Dates: start: 20151030
  3. FERINJECT [Concomitant]
     Active Substance: FERRIC CARBOXYMALTOSE
     Indication: IRON DEFICIENCY
     Dosage: 100 MG, QD
     Route: 065
     Dates: start: 20160408, end: 20160429
  4. INCB018424 [Suspect]
     Active Substance: RUXOLITINIB
     Indication: PRIMARY MYELOFIBROSIS
     Dosage: 2 DF, QD (20 MG)
     Route: 048
     Dates: start: 20150508
  5. INCB018424 [Suspect]
     Active Substance: RUXOLITINIB
     Dosage: 2 DF, QD (15 MG)
     Route: 048
     Dates: start: 20150908, end: 20151027
  6. INCB018424 [Suspect]
     Active Substance: RUXOLITINIB
     Dosage: 2 DF, QD (15 MG)
     Route: 048
     Dates: start: 20151215, end: 20160209
  7. CIPROFLOXACIN. [Concomitant]
     Active Substance: CIPROFLOXACIN
     Indication: PYREXIA
     Dosage: 50 MG, QD
     Route: 065
     Dates: start: 20160520
  8. INCB018424 [Suspect]
     Active Substance: RUXOLITINIB
     Dosage: 2 DF, QD (15 MG)
     Route: 048
     Dates: start: 20150717, end: 20150812
  9. INCB018424 [Suspect]
     Active Substance: RUXOLITINIB
     Dosage: 2 DF, QD (15 MG)
     Route: 048
     Dates: start: 20160309, end: 20160501
  10. INCB018424 [Suspect]
     Active Substance: RUXOLITINIB
     Dosage: 2 DF, QD (15 MG)
     Route: 048

REACTIONS (5)
  - Tubo-ovarian abscess [Recovered/Resolved]
  - Feeling abnormal [Unknown]
  - Hydronephrosis [Recovered/Resolved]
  - Appendicitis [Recovered/Resolved]
  - General physical health deterioration [Recovered/Resolved]

NARRATIVE: CASE EVENT DATE: 20160520
